FAERS Safety Report 7538762-7 (Version None)
Quarter: 2011Q2

REPORT INFORMATION
  Report Type: 
  Country: None (occurrence: None)
  Receive Date: 20110610
  Receipt Date: 20090930
  Transmission Date: 20111010
  Serious: Yes (Death, Other)
  Sender: FDA-Public Use
  Company Number: US-BAYER-200934880NA

PATIENT
  Age: 53 Year
  Sex: Male
  Weight: 73 kg

DRUGS (25)
  1. TRASYLOL [Suspect]
     Indication: HEART TRANSPLANT
     Dosage: 1 ML
     Route: 042
     Dates: start: 19990910, end: 19990911
  2. RED BLOOD CELLS [Concomitant]
     Dosage: 8 U, UNK
     Route: 042
     Dates: start: 19990910
  3. METFORMIN HYDROCHLORIDE [Concomitant]
     Route: 048
  4. ETOMIDATE [Concomitant]
     Dosage: UNK
     Route: 042
     Dates: start: 19990910, end: 19990911
  5. TRASYLOL [Suspect]
     Indication: ABDOMINAL ADHESIONS
     Dosage: 50CC/HOUR
     Route: 042
     Dates: start: 19990910, end: 19990911
  6. HEPARIN [Concomitant]
     Dosage: UNK
     Route: 042
     Dates: start: 19990910, end: 19990911
  7. PROTAMINE SULFATE [Concomitant]
     Dosage: UNK
     Route: 042
     Dates: start: 19990910, end: 19990911
  8. PLASMALYTE [GLUCOSE,POTASSIUM CHLORIDE] [Concomitant]
     Dosage: 1000 CC
     Dates: start: 19990910
  9. TRASYLOL [Suspect]
     Indication: STERNOTOMY
     Dosage: 200ML
     Route: 042
     Dates: start: 19990910, end: 19990911
  10. ACETYLSALICYLIC ACID SRT [Concomitant]
     Route: 048
  11. COUMADIN [Concomitant]
     Route: 048
  12. DIGOXIN [Concomitant]
     Dosage: 0.125 MG, QD
     Route: 048
  13. ZESTRIL [Concomitant]
     Dosage: 20 MG, QD
     Route: 048
  14. EPINEPHRINE [Concomitant]
     Dosage: UNK
     Route: 042
     Dates: start: 19990910, end: 19990911
  15. FENTANYL [Concomitant]
     Dosage: UNK
     Route: 042
     Dates: start: 19990910, end: 19990911
  16. SOLU-MEDROL [Concomitant]
     Dosage: UNK
     Route: 042
     Dates: start: 19990910, end: 19990911
  17. FRESH FROZEN PLASMA [Concomitant]
     Dosage: 2 U, UNK
     Route: 042
     Dates: start: 19990910
  18. COREG [Concomitant]
     Dosage: 3.125
     Route: 048
  19. PRILOSEC [Concomitant]
     Dosage: 25 MG, BID
     Route: 048
  20. LASIX [Concomitant]
     Dosage: 80 MG, BID
     Route: 048
  21. DOPAMINE HCL [Concomitant]
     Dosage: UNK
     Route: 042
     Dates: start: 19990910, end: 19990911
  22. VERSED [Concomitant]
     Dosage: UNK
     Route: 042
     Dates: start: 19990910, end: 19990911
  23. PLATELETS [Concomitant]
     Dosage: 10 U, UNK
     Route: 042
     Dates: start: 19990910
  24. PROZAC [Concomitant]
     Dosage: 10 MG, BID
     Route: 048
  25. DOBUTAMINE HYDROCHLORIDE [Concomitant]
     Dosage: UNK
     Route: 042
     Dates: start: 19990910, end: 19990911

REACTIONS (14)
  - INJURY [None]
  - MULTI-ORGAN FAILURE [None]
  - RENAL IMPAIRMENT [None]
  - EMOTIONAL DISTRESS [None]
  - UNEVALUABLE EVENT [None]
  - ANXIETY [None]
  - RENAL INJURY [None]
  - DEATH [None]
  - ANHEDONIA [None]
  - RENAL FAILURE ACUTE [None]
  - RENAL FAILURE [None]
  - STRESS [None]
  - FEAR [None]
  - PAIN [None]
